FAERS Safety Report 9411455 (Version 1)
Quarter: 2013Q3

REPORT INFORMATION
  Report Type: Spontaneous
  Country: US (occurrence: None)
  Receive Date: 20130718
  Receipt Date: 20130718
  Transmission Date: 20140515
  Serious: Yes (Other)
  Sender: FDA-Public Use
  Company Number: None

PATIENT
  Age: 35 Year
  Sex: Female
  Weight: 79.38 kg

DRUGS (1)
  1. LEVOTHYROXINE [Suspect]
     Indication: HYPOTHYROIDISM
     Dosage: 1 TAB DAILY PO
     Route: 048
     Dates: start: 20130701, end: 20130714

REACTIONS (4)
  - Dry skin [None]
  - Constipation [None]
  - Asthenia [None]
  - Hypothyroidism [None]
